FAERS Safety Report 4754410-3 (Version None)
Quarter: 2005Q3

REPORT INFORMATION
  Report Type: 
  Country: None (occurrence: None)
  Receive Date: 20050829
  Receipt Date: 20050824
  Transmission Date: 20060218
  Serious: Yes (Hospitalization)
  Sender: FDA-Public Use
  Company Number: GB-BOEHRINGER INGELHEIM PHARMACEUTICALS, INC.-2005-UK-01591UK

PATIENT
  Age: 76 Year
  Sex: Male

DRUGS (7)
  1. PERSANTIN (00015/0052R) [Suspect]
     Dosage: 200MG TWICE DAILY
     Route: 048
     Dates: end: 20050804
  2. DOXYCYCLINE [Concomitant]
     Route: 048
  3. AMIODARONE HCL [Concomitant]
     Route: 048
  4. ASPIRIN [Concomitant]
     Route: 048
  5. ALLOPURINOL [Concomitant]
     Route: 048
  6. FUROSEMIDE [Concomitant]
     Route: 048
  7. PERINDOPRIL [Concomitant]
     Route: 048

REACTIONS (1)
  - ORTHOSTATIC HYPOTENSION [None]
